FAERS Safety Report 18249918 (Version 5)
Quarter: 2022Q1

REPORT INFORMATION
  Report Type: Spontaneous
  Country: ES (occurrence: ES)
  Receive Date: 20200910
  Receipt Date: 20220117
  Transmission Date: 20220423
  Serious: Yes (Hospitalization, Other)
  Sender: FDA-Public Use
  Company Number: NVSC2020ES244286

PATIENT
  Age: 48 Year
  Sex: Female

DRUGS (8)
  1. GEFITINIB [Interacting]
     Active Substance: GEFITINIB
     Indication: Lung adenocarcinoma stage IV
     Dosage: 250 MG, QD
     Route: 065
  2. IMATINIB [Interacting]
     Active Substance: IMATINIB
     Indication: Chronic myeloid leukaemia
     Dosage: 600 MG, QD
     Route: 065
  3. IMATINIB [Interacting]
     Active Substance: IMATINIB
     Dosage: 400 MG, QD
     Route: 065
  4. IMATINIB [Interacting]
     Active Substance: IMATINIB
     Dosage: 300 MG, QD, DISCONTINUED AT 22 DAYS
     Route: 065
  5. REPAGLINIDE [Concomitant]
     Active Substance: REPAGLINIDE
     Indication: Product used for unknown indication
     Dosage: UNK, 8 HOURS
     Route: 065
  6. BEMIPARIN SODIUM [Concomitant]
     Active Substance: BEMIPARIN SODIUM
     Indication: Product used for unknown indication
     Dosage: 5000 IU (INTERNATIONAL UNIT) DAILY;
     Route: 065
  7. INSULIN GLARGINE [Concomitant]
     Active Substance: INSULIN GLARGINE
     Indication: Product used for unknown indication
     Dosage: 28 IU, QD
     Route: 065
  8. BISOPROLOL [Concomitant]
     Active Substance: BISOPROLOL
     Indication: Product used for unknown indication
     Dosage: 2.5 MG, QD
     Route: 065

REACTIONS (2)
  - Pancreatitis acute [Recovered/Resolved]
  - Drug interaction [Unknown]
